FAERS Safety Report 8210993-2 (Version None)
Quarter: 2012Q1

REPORT INFORMATION
  Report Type: 
  Country: None (occurrence: None)
  Receive Date: 20120315
  Receipt Date: 20120306
  Transmission Date: 20120608
  Serious: Yes (Other)
  Sender: FDA-Public Use
  Company Number: US-SANOFI-AVENTIS-2012SA011643

PATIENT
  Age: 57 Year
  Sex: Female
  Weight: 99 kg

DRUGS (11)
  1. LANTUS [Suspect]
     Indication: TYPE 2 DIABETES MELLITUS
     Dosage: 35 UNITS IN THE AM AND 45 UNITS IN THE PM.
     Route: 058
     Dates: start: 20100601, end: 20120201
  2. SOLOSTAR [Suspect]
     Indication: TYPE 2 DIABETES MELLITUS
     Dates: start: 20100101, end: 20120201
  3. ASPIRIN [Concomitant]
  4. HUMAN GROWTH HORMONE, RECOMBINANT [Concomitant]
  5. THYROXIN [Concomitant]
  6. SIMVASTATIN [Concomitant]
  7. OTHER HORMONES [Concomitant]
  8. NOVOLOG [Concomitant]
  9. METFORMIN HCL [Concomitant]
  10. VITAMIN TAB [Concomitant]
  11. LISINOPRIL [Concomitant]

REACTIONS (3)
  - ADRENOCORTICAL INSUFFICIENCY ACUTE [None]
  - KNEE ARTHROPLASTY [None]
  - HYPOPITUITARISM [None]
